FAERS Safety Report 9075872 (Version 2)
Quarter: 2013Q2

REPORT INFORMATION
  Report Type: Spontaneous
  Country: JP (occurrence: JP)
  Receive Date: 20130130
  Receipt Date: 20130403
  Transmission Date: 20140414
  Serious: Yes (Hospitalization, Other)
  Sender: FDA-Public Use
  Company Number: JP-AMGEN-JPNSP2013005509

PATIENT
  Age: 56 Year
  Sex: Male

DRUGS (14)
  1. ENBREL [Suspect]
     Indication: RHEUMATOID ARTHRITIS
     Dosage: 25 MG, 2X/WEEK
     Route: 058
     Dates: start: 20060123, end: 20070620
  2. ENBREL [Suspect]
     Dosage: 25 MG, WEEKLY
     Route: 058
     Dates: start: 20070621, end: 20081022
  3. ENBREL [Suspect]
     Dosage: 25 MG, 1X/DAY
     Dates: start: 20081023, end: 20091221
  4. ENBREL [Suspect]
     Dosage: 25 MG, 1X/DAY
     Dates: start: 20110113, end: 20121208
  5. RIMATIL [Concomitant]
     Indication: RHEUMATOID ARTHRITIS
     Dosage: 100 MG, 1X/DAY
     Route: 048
     Dates: start: 20060122
  6. TAKEPRON [Concomitant]
     Indication: PROPHYLAXIS
     Dosage: 15 MG, 1X/DAY
     Route: 048
     Dates: start: 20060120
  7. CYTOTEC [Concomitant]
     Indication: PROPHYLAXIS
     Dosage: 100 UG, 3X/DAY
     Route: 048
     Dates: start: 20060120
  8. ISCOTIN                            /00030201/ [Concomitant]
     Indication: PROPHYLAXIS
     Dosage: 200 MG, 1X/DAY
     Route: 048
     Dates: start: 20100206
  9. FOLIAMIN [Concomitant]
     Indication: PROPHYLAXIS
     Dosage: 5 MG, WEEKLY
     Route: 048
     Dates: start: 20060122
  10. PYDOXAL [Concomitant]
     Indication: PROPHYLAXIS
     Dosage: 10 MG, 1X/DAY
     Route: 048
     Dates: start: 20100206
  11. OLMETEC [Concomitant]
     Indication: HYPERTENSION
     Dosage: 20 MG, 1X/DAY
     Route: 048
     Dates: start: 20060122
  12. BAKTAR [Concomitant]
     Indication: PROPHYLAXIS
     Dosage: UNK
     Route: 048
     Dates: start: 20100206
  13. RHEUMATREX /00113802/ [Concomitant]
     Indication: RHEUMATOID ARTHRITIS
     Dosage: 8 MG, WEEKLY
     Route: 048
     Dates: start: 20060122, end: 20100103
  14. RHEUMATREX /00113802/ [Concomitant]
     Dosage: 6 MG, WEEKLY
     Route: 048
     Dates: start: 20100507

REACTIONS (4)
  - Pleurisy [Recovering/Resolving]
  - Organising pneumonia [Recovering/Resolving]
  - Arthritis [Unknown]
  - Organising pneumonia [Recovering/Resolving]
